FAERS Safety Report 17550568 (Version 1)
Quarter: 2020Q1

REPORT INFORMATION
  Report Type: Spontaneous
  Country: US (occurrence: US)
  Receive Date: 20200317
  Receipt Date: 20200317
  Transmission Date: 20200409
  Serious: Yes (Hospitalization)
  Sender: FDA-Public Use
  Company Number: None

PATIENT
  Age: 52 Year
  Sex: Male

DRUGS (2)
  1. COSENTYX [Suspect]
     Active Substance: SECUKINUMAB
     Indication: ANKYLOSING SPONDYLITIS
     Dosage: ?          OTHER FREQUENCY:EVERY MONTH;?
     Route: 058
     Dates: start: 20180213
  2. N/A [Concomitant]
     Active Substance: UNSPECIFIED INGREDIENT

REACTIONS (2)
  - Blood pressure abnormal [None]
  - Therapy cessation [None]
